FAERS Safety Report 25267147 (Version 3)
Quarter: 2025Q4

REPORT INFORMATION
  Report Type: Spontaneous
  Country: CA (occurrence: CA)
  Receive Date: 20250505
  Receipt Date: 20251014
  Transmission Date: 20260117
  Serious: Yes (Other)
  Sender: AMGEN
  Company Number: CA-AMGEN-CANSP2025085151

PATIENT
  Age: 66 Year
  Sex: Female

DRUGS (1)
  1. EVENITY [Suspect]
     Active Substance: ROMOSOZUMAB-AQQG
     Indication: Osteoporosis
     Dosage: UNK UNK, QMO
     Route: 065
     Dates: start: 20240403

REACTIONS (1)
  - Skin indentation [Not Recovered/Not Resolved]

NARRATIVE: CASE EVENT DATE: 20241101
